FAERS Safety Report 10606346 (Version 1)
Quarter: 2014Q4

REPORT INFORMATION
  Report Type: Other
  Country: DE (occurrence: DE)
  Receive Date: 20141125
  Receipt Date: 20141125
  Transmission Date: 20150529
  Serious: Yes (Congenital Anomaly, Other)
  Sender: FDA-Public Use
  Company Number: DE-LUPIN PHARMACEUTICALS INC.-E2B_00002751

PATIENT
  Age: 0 Day
  Sex: Female
  Weight: 2.33 kg

DRUGS (6)
  1. THYRONAJOD [Concomitant]
     Active Substance: LEVOTHYROXINE SODIUM\POTASSIUM IODIDE
     Indication: HYPOTHYROIDISM
     Dosage: 50 ?G/D
     Route: 064
     Dates: start: 20130210, end: 20131008
  2. HAEMATE [Concomitant]
     Active Substance: ANTIHEMOPHILIC FACTOR HUMAN
     Indication: VON WILLEBRAND^S DISEASE
     Route: 064
     Dates: start: 20130325, end: 20130403
  3. NAUSEMA [Concomitant]
     Indication: VOMITING IN PREGNANCY
     Route: 064
  4. LAMOTRIGINE. [Suspect]
     Active Substance: LAMOTRIGINE
     Dosage: 150MG/D (GW 12-DELIVERY)
     Route: 064
     Dates: end: 20131008
  5. LAMOTRIGINE. [Suspect]
     Active Substance: LAMOTRIGINE
     Indication: EPILEPSY
     Dosage: 100 MG/D (GW 0-12)
     Route: 064
     Dates: start: 20130210
  6. FOLSAN 5 MG VON ABBOTT [Concomitant]
     Indication: PROPHYLAXIS OF NEURAL TUBE DEFECT
     Route: 064
     Dates: start: 20130210, end: 20131008

REACTIONS (7)
  - Coagulation disorder neonatal [Recovered/Resolved]
  - Premature baby [Unknown]
  - Haemangioma congenital [Unknown]
  - Cerebral haemorrhage neonatal [Unknown]
  - Atrial septal defect [Unknown]
  - Foetal exposure during pregnancy [Unknown]
  - Thrombocytopenia neonatal [Recovered/Resolved]

NARRATIVE: CASE EVENT DATE: 20131008
